FAERS Safety Report 9328048 (Version 1)
Quarter: 2013Q2

REPORT INFORMATION
  Report Type: Spontaneous
  Country: US (occurrence: US)
  Receive Date: 20130604
  Receipt Date: 20130604
  Transmission Date: 20140414
  Serious: No
  Sender: FDA-Public Use
  Company Number: US-SANOFI-AVENTIS-2012SA031107

PATIENT
  Sex: 0

DRUGS (2)
  1. LANTUS [Suspect]
     Dosage: DOSE:45 UNIT(S)
     Route: 058
  2. BYETTA [Suspect]
     Route: 065
     Dates: start: 2012

REACTIONS (4)
  - Weight decreased [Unknown]
  - Nausea [Recovered/Resolved]
  - Abdominal discomfort [Not Recovered/Not Resolved]
  - Constipation [Not Recovered/Not Resolved]
